FAERS Safety Report 4288986-X (Version None)
Quarter: 2004Q1

REPORT INFORMATION
  Report Type: 
  Country: None (occurrence: None)
  Receive Date: 20040205
  Receipt Date: 20031119
  Transmission Date: 20041129
  Serious: Yes (Hospitalization)
  Sender: FDA-Public Use
  Company Number: MEDI-0001148

PATIENT
  Age: 49 Year
  Sex: Male
  Weight: 110.2241 kg

DRUGS (4)
  1. ETHYOL [Suspect]
     Indication: RADIOTHERAPY
     Dosage: 5 IN 1 WK, SUBCUTANEOUS
     Route: 058
     Dates: start: 20030827, end: 20031007
  2. ANZEMET (DOLASETRON MESILATE) [Concomitant]
  3. ZOFRAN [Concomitant]
  4. CARBOPLATIN [Concomitant]

REACTIONS (6)
  - EYE SWELLING [None]
  - INJECTION SITE RASH [None]
  - NAUSEA [None]
  - OEDEMA PERIPHERAL [None]
  - RASH [None]
  - STEVENS-JOHNSON SYNDROME [None]
